FAERS Safety Report 8880492 (Version 1)
Quarter: 2012Q4

REPORT INFORMATION
  Report Type: 
  Country: US (occurrence: US)
  Receive Date: 20121031
  Receipt Date: 20121031
  Transmission Date: 20130627
  Serious: No
  Sender: FDA-Public Use
  Company Number: US-ASTRAZENECA-2012SE78844

PATIENT
  Age: 89 Month
  Sex: Male
  Weight: 33.1 kg

DRUGS (5)
  1. SYMBICORT PMDI [Suspect]
     Indication: ASTHMA
     Dosage: 80/4.5 MCG, Two times a day
     Route: 055
     Dates: start: 2011
  2. PROVENTIL [Concomitant]
     Indication: ASTHMA
     Dosage: 2 PUFFS , 4 TIMES A DAY AS NEEDED
     Route: 055
  3. PROVENTIL [Concomitant]
     Indication: ASTHMA
     Dosage: 2 PUFFS, EVERY 4 HOURS
     Route: 055
  4. LORATIDINE [Concomitant]
     Indication: ASTHMA
     Route: 048
  5. SINGULAIR [Concomitant]
     Indication: ASTHMA
     Route: 048

REACTIONS (3)
  - Dyspnoea [Unknown]
  - Cough [Unknown]
  - Drug dose omission [Unknown]
